FAERS Safety Report 9752443 (Version 1)
Quarter: 2013Q4

REPORT INFORMATION
  Report Type: Spontaneous
  Country: US (occurrence: US)
  Receive Date: 20131213
  Receipt Date: 20131213
  Transmission Date: 20140711
  Serious: No
  Sender: FDA-Public Use
  Company Number: US-PFIZER INC-2013355698

PATIENT
  Age: 55 Year
  Sex: Female
  Weight: 74.83 kg

DRUGS (1)
  1. PROTONIX [Suspect]
     Dosage: 40 MG, DAILY
     Dates: start: 2012

REACTIONS (3)
  - Dyspnoea [Not Recovered/Not Resolved]
  - Arthritis [Not Recovered/Not Resolved]
  - Lung disorder [Not Recovered/Not Resolved]
